FAERS Safety Report 24087578 (Version 4)
Quarter: 2024Q3

REPORT INFORMATION
  Report Type: Spontaneous
  Country: US (occurrence: US)
  Receive Date: 20240714
  Receipt Date: 20240802
  Transmission Date: 20241017
  Serious: Yes (Hospitalization, Other)
  Sender: ROCHE
  Company Number: US-ROCHE-10000021926

PATIENT
  Age: 70 Year
  Sex: Female
  Weight: 67.58 kg

DRUGS (5)
  1. CATHFLO ACTIVASE [Suspect]
     Active Substance: ALTEPLASE
     Indication: Product used for unknown indication
     Route: 065
  2. AMLODIPINE [Concomitant]
     Active Substance: AMLODIPINE BESYLATE
     Indication: Hypertension
     Route: 048
  3. LYRICA [Concomitant]
     Active Substance: PREGABALIN
     Indication: Neuropathy peripheral
     Route: 048
     Dates: start: 2021
  4. NORCO [Concomitant]
     Active Substance: ACETAMINOPHEN\HYDROCODONE BITARTRATE
     Indication: Pain
     Route: 048
     Dates: start: 2021, end: 202404
  5. NORCO [Concomitant]
     Active Substance: ACETAMINOPHEN\HYDROCODONE BITARTRATE
     Route: 048
     Dates: start: 202404

REACTIONS (10)
  - Peripheral artery occlusion [Not Recovered/Not Resolved]
  - Arteritis infective [Not Recovered/Not Resolved]
  - Asthenia [Unknown]
  - Nausea [Unknown]
  - Feeding disorder [Unknown]
  - Alopecia [Unknown]
  - Diarrhoea [Unknown]
  - Intestinal obstruction [Recovered/Resolved]
  - Skin papilloma [Unknown]
  - Neuralgia [Unknown]

NARRATIVE: CASE EVENT DATE: 20230801
